FAERS Safety Report 11145444 (Version 4)
Quarter: 2015Q3

REPORT INFORMATION
  Report Type: Report from Study
  Country: US (occurrence: US)
  Receive Date: 20150528
  Receipt Date: 20150722
  Transmission Date: 20151125
  Serious: Yes (Other)
  Sender: FDA-Public Use
  Company Number: US-BAYER-2015-154002

PATIENT
  Age: 58 Year
  Sex: Male

DRUGS (2)
  1. NEXAVAR [Suspect]
     Active Substance: SORAFENIB
     Indication: MIXED HEPATOCELLULAR CHOLANGIOCARCINOMA
     Dosage: 400 MG, BID
     Route: 048
     Dates: start: 20150408
  2. NEXAVAR [Suspect]
     Active Substance: SORAFENIB
     Indication: MIXED HEPATOCELLULAR CHOLANGIOCARCINOMA
     Dosage: 400 MG, BID
     Route: 048
     Dates: end: 201506

REACTIONS (9)
  - Blood pressure increased [Recovered/Resolved]
  - Liver function test abnormal [Not Recovered/Not Resolved]
  - Diarrhoea [Not Recovered/Not Resolved]
  - Dysphonia [Not Recovered/Not Resolved]
  - Thrombosis [Not Recovered/Not Resolved]
  - Abdominal discomfort [Recovered/Resolved]
  - Drug ineffective [None]
  - Pyrexia [Recovered/Resolved]
  - Biopsy thyroid gland [None]

NARRATIVE: CASE EVENT DATE: 201504
